FAERS Safety Report 12886888 (Version 1)
Quarter: 2016Q4

REPORT INFORMATION
  Report Type: Spontaneous
  Country: BR (occurrence: BR)
  Receive Date: 20161026
  Receipt Date: 20161026
  Transmission Date: 20170207
  Serious: Yes (Other)
  Sender: FDA-Public Use
  Company Number: BR-NOVOPROD-515378

PATIENT
  Sex: Female

DRUGS (2)
  1. NOVOLIN R [Suspect]
     Active Substance: INSULIN HUMAN
     Indication: DIABETES MELLITUS
     Dosage: UNK
     Route: 065
  2. NOVOLIN N [Suspect]
     Active Substance: INSULIN HUMAN
     Indication: DIABETES MELLITUS
     Dosage: 68 U, QD (42 U IN THE MORNING AND 26 U AT NIGHT)
     Route: 065

REACTIONS (4)
  - Syncope [Recovered/Resolved]
  - Wrong drug administered [Unknown]
  - Blood glucose abnormal [Recovered/Resolved]
  - Product packaging issue [Unknown]
